FAERS Safety Report 4868358-7 (Version None)
Quarter: 2005Q4

REPORT INFORMATION
  Report Type: 
  Country: None (occurrence: None)
  Receive Date: 20051229
  Receipt Date: 20051118
  Transmission Date: 20060501
  Serious: Yes (Death, Life-Threatening, Hospitalization)
  Sender: FDA-Public Use
  Company Number: KR-SANOFI-SYNTHELABO-A01200508050

PATIENT
  Sex: Female
  Weight: 68 kg

DRUGS (16)
  1. PLAVIX [Suspect]
     Indication: ANGINA UNSTABLE
     Route: 048
     Dates: start: 20041111, end: 20050613
  2. METHYLPREDNISOLONE [Concomitant]
     Indication: ASTHMA
     Route: 042
     Dates: start: 20050308, end: 20050613
  3. NOVOLIN R [Concomitant]
     Indication: DIABETES MELLITUS
     Route: 058
     Dates: end: 20050613
  4. NOVOLIN N [Concomitant]
     Indication: DIABETES MELLITUS
     Route: 058
     Dates: end: 20050613
  5. MONTELUKAST [Concomitant]
     Indication: ASTHMA
     Route: 048
     Dates: start: 20050506, end: 20050613
  6. AZELASTINE [Concomitant]
     Indication: ASTHMA
     Route: 048
     Dates: start: 20050318, end: 20050613
  7. ASPIRIN [Concomitant]
     Indication: ANGINA UNSTABLE
     Route: 048
     Dates: start: 20041111, end: 20050613
  8. DILTIAZEM HCL [Concomitant]
     Indication: ANGINA UNSTABLE
     Route: 048
     Dates: start: 20041111, end: 20050613
  9. DIAVITA [Concomitant]
     Indication: VITAMIN SUPPLEMENTATION
     Route: 048
     Dates: start: 20050218, end: 20050613
  10. SUCRALFATE [Concomitant]
     Indication: DYSPEPSIA
     Route: 048
     Dates: start: 20050309, end: 20050613
  11. OMEPRAZOLE [Concomitant]
     Indication: ULCER
     Route: 048
     Dates: start: 20050604, end: 20050613
  12. TRAMADOL HCL [Concomitant]
     Indication: GAIT DISTURBANCE
     Route: 048
     Dates: start: 20050612, end: 20050613
  13. REBAMIPIDE [Concomitant]
     Indication: DYSPEPSIA
     Route: 048
     Dates: start: 20050527, end: 20050613
  14. AGIOGRANULE [Concomitant]
     Indication: CONSTIPATION
     Route: 048
     Dates: start: 20050425, end: 20050613
  15. CALCIUM POLYCARBOPHIL [Concomitant]
     Indication: CONSTIPATION
     Route: 048
     Dates: start: 20050331, end: 20050613
  16. FERRUM POLA [Concomitant]
     Indication: ANAEMIA
     Route: 048
     Dates: start: 20050101, end: 20050613

REACTIONS (9)
  - ASTHMA [None]
  - CARDIAC ARREST [None]
  - CONDITION AGGRAVATED [None]
  - DYSPNOEA [None]
  - GENERAL PHYSICAL HEALTH DETERIORATION [None]
  - HAEMODIALYSIS [None]
  - RENAL FAILURE CHRONIC [None]
  - SEPSIS [None]
  - SOMNOLENCE [None]
